FAERS Safety Report 8397959-7 (Version None)
Quarter: 2012Q2

REPORT INFORMATION
  Report Type: 
  Country: None (occurrence: None)
  Receive Date: 20120531
  Receipt Date: 20120524
  Transmission Date: 20120825
  Serious: Yes (Other)
  Sender: FDA-Public Use
  Company Number: DE-PFIZER INC-2012103662

PATIENT
  Age: 13 Year

DRUGS (4)
  1. SORAFENIB [Suspect]
     Indication: HEPATIC NEOPLASM MALIGNANT NON-RESECTABLE
     Dosage: 352 MG/M2/DAY, CYCLIC, ON DAYS 5-21
  2. FLUOROURACIL [Concomitant]
     Indication: HEPATIC NEOPLASM MALIGNANT NON-RESECTABLE
  3. CISPLATIN [Suspect]
     Indication: HEPATIC NEOPLASM MALIGNANT NON-RESECTABLE
     Dosage: 80 MG/M2/24H, CYCLIC, ON DAY 1
     Route: 041
  4. DOXORUBICIN HCL [Suspect]
     Indication: HEPATIC NEOPLASM MALIGNANT NON-RESECTABLE
     Dosage: 60 MG/M2/48H, CYCLIC, ON DAYS 2 AND 3
     Route: 041

REACTIONS (1)
  - PALMAR-PLANTAR ERYTHRODYSAESTHESIA SYNDROME [None]
